FAERS Safety Report 15104320 (Version 2)
Quarter: 2018Q3

REPORT INFORMATION
  Report Type: Spontaneous
  Country: US (occurrence: US)
  Receive Date: 20180703
  Receipt Date: 20180720
  Transmission Date: 20181010
  Serious: No
  Sender: FDA-Public Use
  Company Number: US-VIFOR (INTERNATIONAL) INC.-VIT-2018-06137

PATIENT
  Age: 72 Year
  Sex: Male
  Weight: 96.7 kg

DRUGS (1)
  1. VELTASSA [Suspect]
     Active Substance: PATIROMER
     Indication: BLOOD POTASSIUM INCREASED
     Route: 048
     Dates: start: 201806, end: 20180627

REACTIONS (1)
  - Headache [Recovered/Resolved]

NARRATIVE: CASE EVENT DATE: 201806
